FAERS Safety Report 5526059-6 (Version None)
Quarter: 2007Q4

REPORT INFORMATION
  Report Type: 
  Country: None (occurrence: None)
  Receive Date: 20071120
  Receipt Date: 20071109
  Transmission Date: 20080405
  Serious: Yes (Other)
  Sender: FDA-Public Use
  Company Number: 07H-163-0313441-00

PATIENT
  Age: 45 Year
  Sex: Male

DRUGS (12)
  1. NEO-SYNEPHRINE INJECTION (NEO-SYNEPHRINE HYDROCHLORIDE INJECTION) (PHE [Suspect]
     Indication: DRUG USE FOR UNKNOWN INDICATION
  2. LEVOFLOXACIN [Concomitant]
  3. QUINUPRISTIN-DALFOPRISTIN(SYNERCID/01462601/) [Concomitant]
  4. HYDROCORTISONE SUCCINATE(HYDROCORTISONE SODIUM SUCCINATE) [Concomitant]
  5. PROPOFOL [Concomitant]
  6. MIDAZOLAM HYDROCHLORIDE(MIDAZOLAM HYDROCHLORIDE) [Concomitant]
  7. ELECTROLYTE(ELECTROLYTE) [Concomitant]
  8. FUROSEMIDE [Concomitant]
  9. HYDROXYZINE HCL [Concomitant]
  10. METOPROLOL TARTRATE [Concomitant]
  11. HEPARIN SODIUM [Concomitant]
  12. NOREPINEPHRINE BITARTRATE(NOREPINEPHRINE BITARTRATE) [Concomitant]

REACTIONS (7)
  - BLOOD BLISTER [None]
  - ERYTHEMA [None]
  - PLATELET COUNT DECREASED [None]
  - PURPURA [None]
  - SKIN EROSION [None]
  - SKIN EXFOLIATION [None]
  - VASCULAR OCCLUSION [None]
